FAERS Safety Report 18855695 (Version 1)
Quarter: 2021Q1

REPORT INFORMATION
  Report Type: Spontaneous
  Country: US (occurrence: US)
  Receive Date: 20210205
  Receipt Date: 20210205
  Transmission Date: 20210420
  Serious: Yes (Hospitalization)
  Sender: FDA-Public Use
  Company Number: US-ALLERGAN-2105081US

PATIENT
  Sex: Female

DRUGS (2)
  1. ARMOUR THYROID [Suspect]
     Active Substance: THYROID, PORCINE
     Indication: THYROID HORMONE REPLACEMENT THERAPY
     Dosage: 60 MG TABLET AND 15 MG TABLET TOGETHER IN THE MORNING
     Route: 048
     Dates: end: 202101
  2. ARMOUR THYROID [Suspect]
     Active Substance: THYROID, PORCINE
     Indication: THYROID HORMONE REPLACEMENT THERAPY
     Dosage: 60 MG TABLET AND 15 MG TABLET TOGETHER IN THE MORNING
     Route: 048
     Dates: end: 202101

REACTIONS (8)
  - Dizziness [Unknown]
  - Feeling abnormal [Unknown]
  - Personality change [Recovering/Resolving]
  - Depression [Recovering/Resolving]
  - Hyperhidrosis [Unknown]
  - Asthenia [Unknown]
  - Dyspnoea [Unknown]
  - Therapy interrupted [Unknown]
